FAERS Safety Report 15536104 (Version 1)
Quarter: 2018Q4

REPORT INFORMATION
  Report Type: Spontaneous
  Country: US (occurrence: US)
  Receive Date: 20181015
  Receipt Date: 20181015
  Transmission Date: 20190205
  Serious: No
  Sender: FDA-Public Use
  Company Number: None

PATIENT
  Age: 64 Year
  Sex: Male
  Weight: 79.38 kg

DRUGS (8)
  1. PRALUENT [Suspect]
     Active Substance: ALIROCUMAB
     Indication: BLOOD CHOLESTEROL INCREASED
     Dosage: ?          QUANTITY:2 INJ A MONTH;OTHER FREQUENCY:TWICE MONTHLY;OTHER ROUTE:INJECTION?
     Dates: start: 20180830, end: 20180914
  2. CLOPIDOGREL [Concomitant]
     Active Substance: CLOPIDOGREL BISULFATE
  3. ZIOPTON [Concomitant]
  4. ISORBMONO [Concomitant]
  5. ONE-A-DAY NOS [Concomitant]
     Active Substance: MINERALS\VITAMINS
  6. ASPIRIN 81MG [Concomitant]
     Active Substance: ASPIRIN
  7. METROPROLOL [Concomitant]
     Active Substance: METOPROLOL
  8. PEPSID COMPLETE [Concomitant]

REACTIONS (1)
  - Blood pressure increased [None]

NARRATIVE: CASE EVENT DATE: 20180920
